FAERS Safety Report 10608573 (Version 1)
Quarter: 2014Q4

REPORT INFORMATION
  Report Type: Report from Study
  Country: US (occurrence: US)
  Receive Date: 20141125
  Receipt Date: 20141125
  Transmission Date: 20150529
  Serious: Yes (Hospitalization)
  Sender: FDA-Public Use
  Company Number: US-ACTELION-A-NJ2014-108469

PATIENT
  Age: 86 Year
  Sex: Male

DRUGS (9)
  1. MACITENTAN [Suspect]
     Active Substance: MACITENTAN
     Indication: PULMONARY ARTERIAL HYPERTENSION
     Dosage: 10 MG, UNK
     Route: 048
     Dates: start: 20140815
  2. XARELTO [Concomitant]
     Active Substance: RIVAROXABAN
     Dosage: 15 MG, QD
     Dates: start: 20140916
  3. XARELTO [Concomitant]
     Active Substance: RIVAROXABAN
     Dosage: 10 UNK, UNK
     Dates: start: 20141015, end: 20141117
  4. FINASTERIDE. [Concomitant]
     Active Substance: FINASTERIDE
     Dosage: 5 MG, UNK
     Dates: start: 20140721
  5. DEMADEX [Concomitant]
     Active Substance: TORSEMIDE
     Dosage: 20 MG, UNK
     Dates: start: 20141002
  6. ALLOPURINOL. [Concomitant]
     Active Substance: ALLOPURINOL
     Dosage: 300 MG, UNK
     Dates: end: 20141107
  7. ZOCOR [Concomitant]
     Active Substance: SIMVASTATIN
     Dosage: 20 UNK, UNK
     Dates: end: 20141117
  8. HYDRALAZINE [Concomitant]
     Active Substance: HYDRALAZINE HYDROCHLORIDE
     Dosage: 25 MG, Q6HRS
     Dates: start: 20140918
  9. OMEPRAZOLE. [Concomitant]
     Active Substance: OMEPRAZOLE
     Dosage: 40 UNK, QD
     Dates: start: 20130927

REACTIONS (3)
  - Acute kidney injury [Recovering/Resolving]
  - Cardiac failure congestive [Unknown]
  - General physical condition abnormal [Recovering/Resolving]

NARRATIVE: CASE EVENT DATE: 20141103
